FAERS Safety Report 7220748-3 (Version None)
Quarter: 2011Q1

REPORT INFORMATION
  Report Type: 
  Country: None (occurrence: None)
  Receive Date: 20110111
  Receipt Date: 20110103
  Transmission Date: 20110831
  Serious: Yes (Disabling, Other)
  Sender: FDA-Public Use
  Company Number: US-PFIZER INC-US-WYE-H15485710

PATIENT
  Sex: Female

DRUGS (4)
  1. PREDNISONE [Concomitant]
     Dosage: UNK
  2. ZOLOFT [Concomitant]
     Indication: BIPOLAR I DISORDER
     Dosage: 100 MG, 1X/DAY
     Route: 048
  3. LYRICA [Suspect]
     Indication: PAIN
     Dosage: 50 MG, 3X/DAY
     Route: 048
     Dates: start: 20090101, end: 20090101
  4. OXYGEN [Concomitant]
     Indication: LUNG INFILTRATION
     Dosage: UNK

REACTIONS (6)
  - OSTEOPOROSIS [None]
  - NEOPLASM [None]
  - GAIT DISTURBANCE [None]
  - OSTEONECROSIS [None]
  - OSTEOARTHRITIS [None]
  - LUNG NEOPLASM [None]
